FAERS Safety Report 5833542-2 (Version None)
Quarter: 2008Q3

REPORT INFORMATION
  Report Type: 
  Country: None (occurrence: None)
  Receive Date: 20080804
  Receipt Date: 20080804
  Transmission Date: 20090109
  Serious: No
  Sender: FDA-Public Use
  Company Number: None

PATIENT
  Age: 70 Year
  Sex: Male
  Weight: 79.3795 kg

DRUGS (1)
  1. CIPRO [Suspect]
     Indication: INFECTION
     Dates: start: 19990915, end: 19991015

REACTIONS (2)
  - CARDIAC DISORDER [None]
  - SKIN DISCOLOURATION [None]
